FAERS Safety Report 8486882 (Version 3)
Quarter: 2013Q1

REPORT INFORMATION
  Report Type: Spontaneous
  Country: GR (occurrence: GR)
  Receive Date: 20120402
  Receipt Date: 20130129
  Transmission Date: 20140127
  Serious: Yes (Death, Hospitalization)
  Sender: FDA-Public Use
  Company Number: GR-B.I. PHARMACEUTICALS,INC./RIDGEFIELD-2012-EU-01806GB

PATIENT
  Age: 78 Year
  Sex: Male

DRUGS (5)
  1. PRADAXA [Suspect]
     Indication: ATRIAL FIBRILLATION
     Dosage: 220 MG
     Route: 048
     Dates: start: 20120320, end: 20120326
  2. GLIMERID [Concomitant]
     Indication: DIABETES MELLITUS
     Dosage: 4 MG
     Route: 048
     Dates: end: 20120326
  3. XALATAN [Concomitant]
     Indication: OCULAR HYPERTENSION
     Route: 031
     Dates: end: 20120326
  4. LARVIN [Concomitant]
     Indication: CORONARY ARTERY DISEASE
     Dosage: 75 MG
     Route: 048
     Dates: end: 20120326
  5. DIGOXIN/SANDOZ [Concomitant]
     Indication: ATRIAL FIBRILLATION
     Dosage: 0.125 MG
     Route: 048
     Dates: end: 20120326

REACTIONS (2)
  - Death [Fatal]
  - Haemoptysis [Fatal]
